FAERS Safety Report 20133913 (Version 3)
Quarter: 2022Q4

REPORT INFORMATION
  Report Type: Report from Study
  Country: US (occurrence: US)
  Receive Date: 20211201
  Receipt Date: 20221028
  Transmission Date: 20230113
  Serious: No
  Sender: FDA-Public Use
  Company Number: US-NOVARTISTESTPH-NVSC2021US274274

PATIENT
  Sex: Female
  Weight: 55.33 kg

DRUGS (1)
  1. COSENTYX [Suspect]
     Active Substance: SECUKINUMAB
     Indication: Psoriatic arthropathy
     Dosage: 150 MILLIGRAM PER MILLILITRE, QMO
     Route: 058
     Dates: start: 202008, end: 202111

REACTIONS (2)
  - Fatigue [Unknown]
  - Pain [Unknown]
